FAERS Safety Report 21937289 (Version 1)
Quarter: 2023Q1

REPORT INFORMATION
  Report Type: Spontaneous
  Country: US (occurrence: None)
  Receive Date: 20230201
  Receipt Date: 20230201
  Transmission Date: 20230418
  Serious: Yes (Hospitalization, Other)
  Sender: FDA-Public Use
  Company Number: None

PATIENT
  Age: 27 Year
  Sex: Male
  Weight: 59.87 kg

DRUGS (2)
  1. FOCALIN XR [Suspect]
     Active Substance: DEXMETHYLPHENIDATE HYDROCHLORIDE
     Indication: Attention deficit hyperactivity disorder
  2. DEXMETHYLPHENIDATE 5 MG XR [Concomitant]

REACTIONS (6)
  - Headache [None]
  - Eye pruritus [None]
  - Tachycardia [None]
  - Depression [None]
  - Hyperthermia [None]
  - Product formulation issue [None]
